FAERS Safety Report 21304945 (Version 3)
Quarter: 2023Q2

REPORT INFORMATION
  Report Type: Report from Study
  Country: US (occurrence: US)
  Receive Date: 20220907
  Receipt Date: 20230601
  Transmission Date: 20230721
  Serious: Yes (Other)
  Sender: FDA-Public Use
  Company Number: US-SEATTLE GENETICS-2022SGN08206

PATIENT
  Age: 28 Year
  Sex: Female
  Weight: 92.6 kg

DRUGS (10)
  1. BRENTUXIMAB VEDOTIN [Suspect]
     Active Substance: BRENTUXIMAB VEDOTIN
     Indication: Hodgkin^s disease
     Dosage: 1.2 MG/KG (105 MG), ON DAYS 1 AND 15 OF EVERY 28-DAY CYCLE
     Route: 042
     Dates: start: 20220524, end: 20220816
  2. DOXORUBICIN [Suspect]
     Active Substance: DOXORUBICIN
     Indication: Hodgkin^s disease
     Dosage: 25 MG/M2 (49 MG), ON DAYS 1 AND 15 OF EVERY 28-DAY CYCLE
     Route: 042
     Dates: start: 20220524, end: 20220816
  3. DACARBAZINE [Suspect]
     Active Substance: DACARBAZINE
     Indication: Hodgkin^s disease
     Dosage: 375 MG/M2 (740 MG), ON DAYS 1 AND 15 OF EVERY 28-DAY CYCLE
     Route: 042
     Dates: start: 20220524, end: 20220816
  4. NIVOLUMAB [Suspect]
     Active Substance: NIVOLUMAB
     Indication: Hodgkin^s disease
     Dosage: 240 MG, ON DAYS 1 AND 15 OF EVERY 28-DAY CYCLE
     Route: 042
     Dates: start: 20220524, end: 20220705
  5. PEGFILGRASTIM [Suspect]
     Active Substance: PEGFILGRASTIM
     Indication: Hodgkin^s disease
     Dosage: UNK
     Route: 065
     Dates: start: 20220524, end: 20220816
  6. EMLA [Concomitant]
     Active Substance: LIDOCAINE\PRILOCAINE
     Indication: Anaesthetic premedication
     Dosage: APPLY TO PORT-A-CATH AREA 30 TO 40 MINUTES PRIOR TO PORT ACCESS
     Route: 061
     Dates: start: 20220506
  7. ZOFRAN [Concomitant]
     Active Substance: ONDANSETRON HYDROCHLORIDE
     Indication: Nausea
     Dosage: 8 MG, Q8HR 1-2 DAYS AFTER CHEMOTHERAPY COMPLETE, THEN TAKE 1 TABLET EVERY 8 HOURS AS NEEDED
     Route: 048
     Dates: start: 20220523
  8. COMPAZINE [Concomitant]
     Active Substance: PROCHLORPERAZINE MALEATE
     Indication: Nausea
     Dosage: 10 MG, Q6HR (AS NEEDED)
     Route: 048
     Dates: start: 20220523
  9. ZOLOFT [Concomitant]
     Active Substance: SERTRALINE HYDROCHLORIDE
     Dosage: 100 MG
     Route: 048
     Dates: start: 20220120
  10. ULTRAM [Concomitant]
     Active Substance: TRAMADOL HYDROCHLORIDE
     Indication: Pain
     Dosage: 50 MG, Q6HR (AS NEEDED)
     Route: 048
     Dates: start: 20220704

REACTIONS (1)
  - Lipase increased [Recovered/Resolved]

NARRATIVE: CASE EVENT DATE: 20220830
